FAERS Safety Report 15493173 (Version 1)
Quarter: 2018Q4

REPORT INFORMATION
  Report Type: Spontaneous
  Country: US (occurrence: US)
  Receive Date: 20181012
  Receipt Date: 20181012
  Transmission Date: 20190205
  Serious: No
  Sender: FDA-Public Use
  Company Number: US-SA-2018SA273354

PATIENT
  Age: 43 Year
  Sex: Female
  Weight: 138 kg

DRUGS (26)
  1. FABRAZYME [Suspect]
     Active Substance: AGALSIDASE BETA
     Indication: FABRY^S DISEASE
     Dosage: 145 MG, QOW
     Route: 041
  2. LIDOCAINE/PRILOCAINE [Concomitant]
     Active Substance: LIDOCAINE\PRILOCAINE
     Indication: PREMEDICATION
     Dosage: 2.5 %, UNK
     Route: 065
     Dates: start: 20180727
  3. EFFEXOR [Concomitant]
     Active Substance: VENLAFAXINE HYDROCHLORIDE
     Dosage: 1 CAPUNK, QD
     Route: 048
     Dates: start: 20170209
  4. BUSPIRONE [Concomitant]
     Active Substance: BUSPIRONE HYDROCHLORIDE
     Dosage: 1 DF, BID
     Route: 048
     Dates: start: 20170209
  5. TRAZODONE [Concomitant]
     Active Substance: TRAZODONE HYDROCHLORIDE
     Dosage: 1 DF, AT BEDTIME
     Route: 048
     Dates: start: 20170209
  6. LISINOPRIL. [Concomitant]
     Active Substance: LISINOPRIL
     Dosage: 1 DF, QD
     Route: 048
     Dates: start: 20170209
  7. VITAMIN D2 [Concomitant]
     Active Substance: ERGOCALCIFEROL
     Dosage: 1 DF, BID
     Route: 048
     Dates: start: 20170209
  8. HEPARIN [Concomitant]
     Active Substance: HEPARIN SODIUM
     Dosage: 100 U N/ML, UNK
     Route: 041
     Dates: start: 20180727
  9. FUROSEMIDE. [Concomitant]
     Active Substance: FUROSEMIDE
     Dosage: 1 DF, PRN
     Route: 048
     Dates: start: 20170209
  10. ZOFRAN [ONDANSETRON] [Concomitant]
     Dosage: 1 DF, PRN
     Route: 048
     Dates: start: 20170209
  11. TIZANIDINE. [Concomitant]
     Active Substance: TIZANIDINE
     Dosage: 1 DF, QD
     Route: 048
     Dates: start: 20170209
  12. FABRAZYME [Suspect]
     Active Substance: AGALSIDASE BETA
     Dosage: 145 MG, QOW
     Route: 041
  13. DIPHENHYDRAMINE. [Concomitant]
     Active Substance: DIPHENHYDRAMINE
     Indication: PREMEDICATION
     Dosage: 50 MG, UNK
     Route: 048
     Dates: start: 20180727
  14. DIPHENHYDRAMINE. [Concomitant]
     Active Substance: DIPHENHYDRAMINE
     Indication: ANAPHYLACTIC REACTION
     Dosage: 25 MG, PRN
     Route: 048
     Dates: start: 20180727
  15. EPINEPHRINE. [Concomitant]
     Active Substance: EPINEPHRINE
     Indication: ANAPHYLACTIC REACTION
     Dosage: 0.3 MG, PRN
     Route: 065
     Dates: start: 20180727
  16. LYRICA [Concomitant]
     Active Substance: PREGABALIN
     Dosage: 1 DF, BID
     Route: 048
     Dates: start: 20170209
  17. CLONAZEPAM. [Concomitant]
     Active Substance: CLONAZEPAM
     Dosage: 0.5 TAB UNK, BID
     Route: 048
     Dates: start: 20170209
  18. BENTYL [Concomitant]
     Active Substance: DICYCLOMINE HYDROCHLORIDE
     Dosage: 1 DF (1 CAP), TID
     Route: 048
     Dates: start: 20170209
  19. NORMAL SALINE [Concomitant]
     Active Substance: SODIUM CHLORIDE
     Dosage: 0.9 %, UNK
     Route: 042
  20. SODIUM CHLORIDE. [Concomitant]
     Active Substance: SODIUM CHLORIDE
     Dosage: 0.9 %, UNK
     Route: 042
     Dates: start: 20180727
  21. STERILE WATER [Concomitant]
     Active Substance: WATER
     Dosage: 1 DF, UNK
     Route: 042
     Dates: start: 20180727
  22. ACETAMINOPHEN. [Concomitant]
     Active Substance: ACETAMINOPHEN
     Indication: PREMEDICATION
     Dosage: 1000 MG, UNK
     Route: 048
     Dates: start: 20180727
  23. DIFLUCAN [Concomitant]
     Active Substance: FLUCONAZOLE
     Dosage: 1 DF (1 TAB), PRN
     Route: 048
     Dates: start: 20170209
  24. TEGRETOL [Concomitant]
     Active Substance: CARBAMAZEPINE
     Dosage: 1 DF, TID
     Route: 048
     Dates: start: 20170209
  25. ASPIRIN [ACETYLSALICYLIC ACID] [Concomitant]
     Active Substance: ASPIRIN
     Dosage: 1 DF, QD
     Route: 048
     Dates: start: 20170209
  26. NORCO [Concomitant]
     Active Substance: ACETAMINOPHEN\HYDROCODONE BITARTRATE
     Dosage: 1 DF (1TAB); EVERY 4-6 HRS
     Route: 048
     Dates: start: 20170209

REACTIONS (1)
  - Malaise [Not Recovered/Not Resolved]

NARRATIVE: CASE EVENT DATE: 20180921
